FAERS Safety Report 24571299 (Version 2)
Quarter: 2024Q4

REPORT INFORMATION
  Report Type: Spontaneous
  Country: AU (occurrence: AU)
  Receive Date: 20241101
  Receipt Date: 20241219
  Transmission Date: 20250114
  Serious: Yes (Hospitalization, Other)
  Sender: AMGEN
  Company Number: AU-AMGEN-AUSSP2024212347

PATIENT
  Age: 44 Year
  Sex: Female

DRUGS (8)
  1. TRASTUZUMAB [Suspect]
     Active Substance: TRASTUZUMAB
     Indication: HER2 positive breast cancer
     Dosage: 630 MILLIGRAM, Q3WK
     Route: 040
     Dates: start: 20240905
  2. TRASTUZUMAB [Suspect]
     Active Substance: TRASTUZUMAB
     Dosage: 483 MILLIGRAM, Q3WK (CYCLIC)
     Route: 040
     Dates: end: 20241107
  3. PEMBROLIZUMAB [Suspect]
     Active Substance: PEMBROLIZUMAB
     Indication: HER2 positive breast cancer
     Dosage: 200 MILLIGRAM, Q3WK
     Route: 040
     Dates: start: 20240905, end: 20240905
  4. TUCATINIB [Suspect]
     Active Substance: TUCATINIB
     Indication: HER2 positive breast cancer
     Dosage: 250 MILLIGRAM, BID
     Route: 048
     Dates: start: 20240905
  5. TUCATINIB [Suspect]
     Active Substance: TUCATINIB
     Dosage: 500 MILLIGRAM, BID
     Route: 048
     Dates: start: 20241024, end: 20241024
  6. PREDNISOLONE [Concomitant]
     Active Substance: PREDNISOLONE
     Dosage: 80 MILLIGRAM
     Route: 048
     Dates: start: 20241016
  7. MYCOPHENOLATE MOFETIL [Concomitant]
     Active Substance: MYCOPHENOLATE MOFETIL
     Dosage: UNK
     Route: 048
     Dates: start: 20241031, end: 20241106
  8. MYCOPHENOLATE MOFETIL [Concomitant]
     Active Substance: MYCOPHENOLATE MOFETIL
     Dosage: 1 GRAM, BID
     Route: 048
     Dates: start: 20241107

REACTIONS (2)
  - Immune-mediated hepatitis [Recovered/Resolved]
  - Immune-mediated hepatitis [Recovered/Resolved]

NARRATIVE: CASE EVENT DATE: 20240919
